FAERS Safety Report 7730663-4 (Version None)
Quarter: 2011Q3

REPORT INFORMATION
  Report Type: 
  Country: None (occurrence: None)
  Receive Date: 20110906
  Receipt Date: 20110822
  Transmission Date: 20111222
  Serious: Yes (Hospitalization)
  Sender: FDA-Public Use
  Company Number: US-GLAXOSMITHKLINE-A0815569A

PATIENT
  Age: 67 Year
  Sex: Male
  Weight: 107.7 kg

DRUGS (6)
  1. AVANDIA [Suspect]
     Indication: TYPE 2 DIABETES MELLITUS
     Dosage: 4MG TWICE PER DAY
     Route: 048
     Dates: start: 20010413, end: 20071116
  2. GLUCOPHAGE [Concomitant]
  3. ZESTRIL [Concomitant]
  4. LISINOPRIL [Concomitant]
  5. GLUCOVANCE [Concomitant]
  6. GLYBURIDE [Concomitant]

REACTIONS (9)
  - ACUTE MYOCARDIAL INFARCTION [None]
  - NIGHT BLINDNESS [None]
  - CARDIAC DISORDER [None]
  - DIABETIC RETINOPATHY [None]
  - WEIGHT INCREASED [None]
  - MACULAR OEDEMA [None]
  - VITREOUS HAEMORRHAGE [None]
  - RETINAL DISORDER [None]
  - CARDIAC FAILURE CONGESTIVE [None]
